FAERS Safety Report 21636148 (Version 3)
Quarter: 2023Q1

REPORT INFORMATION
  Report Type: Spontaneous
  Country: CN (occurrence: CN)
  Receive Date: 20221123
  Receipt Date: 20230109
  Transmission Date: 20230417
  Serious: Yes (Other)
  Sender: FDA-Public Use
  Company Number: CN-BAYER-2022A159537

PATIENT
  Age: 74 Year
  Sex: Female

DRUGS (3)
  1. RIVAROXABAN [Suspect]
     Active Substance: RIVAROXABAN
     Indication: Thrombosis
     Dosage: 20 MG
     Route: 048
     Dates: start: 202103, end: 202203
  2. RIVAROXABAN [Suspect]
     Active Substance: RIVAROXABAN
     Dosage: 10 MG
     Route: 048
     Dates: start: 202203, end: 202211
  3. RIVAROXABAN [Suspect]
     Active Substance: RIVAROXABAN
     Dosage: 10 MG
     Route: 048
     Dates: start: 202211

REACTIONS (4)
  - Thrombosis [Recovering/Resolving]
  - Peripheral swelling [Recovering/Resolving]
  - Suspected counterfeit product [Unknown]
  - Product barcode issue [Unknown]

NARRATIVE: CASE EVENT DATE: 20221101
